FAERS Safety Report 11952415 (Version 5)
Quarter: 2016Q2

REPORT INFORMATION
  Report Type: Spontaneous
  Country: US (occurrence: US)
  Receive Date: 20160125
  Receipt Date: 20160412
  Transmission Date: 20160815
  Serious: Yes (Hospitalization)
  Sender: FDA-Public Use
  Company Number: US-ACTELION PHARMACEUTICALS US, INC.-A-US2015-113744

PATIENT
  Age: 65 Year
  Sex: Female

DRUGS (5)
  1. HYDROCODONE [Suspect]
     Active Substance: HYDROCODONE
     Indication: PRODUCT USED FOR UNKNOWN INDICATION
     Route: 065
  2. TRAMADOL. [Suspect]
     Active Substance: TRAMADOL
     Indication: PRODUCT USED FOR UNKNOWN INDICATION
     Route: 065
  3. LETAIRIS [Concomitant]
     Active Substance: AMBRISENTAN
  4. COUMADIN [Concomitant]
     Active Substance: WARFARIN SODIUM
  5. VELETRI [Suspect]
     Active Substance: EPOPROSTENOL
     Indication: PULMONARY HYPERTENSION
     Dosage: 60 NG/KG, PER MIN
     Route: 042
     Dates: start: 20130621

REACTIONS (15)
  - Application site pruritus [Unknown]
  - Pyrexia [Unknown]
  - Catheter site urticaria [Unknown]
  - Nausea [Unknown]
  - Dyspnoea [Unknown]
  - Condition aggravated [Unknown]
  - Vomiting [Unknown]
  - Pain of skin [Unknown]
  - Catheter site pain [Unknown]
  - Catheter site erythema [Unknown]
  - Neck pain [Not Recovered/Not Resolved]
  - Catheter site pruritus [Unknown]
  - Feeling cold [Unknown]
  - Device damage [Unknown]
  - Pneumonia [Unknown]

NARRATIVE: CASE EVENT DATE: 201512
